FAERS Safety Report 9742504 (Version 2)
Quarter: 2013Q4

REPORT INFORMATION
  Report Type: Spontaneous
  Country: GB (occurrence: GB)
  Receive Date: 20131210
  Receipt Date: 20131219
  Transmission Date: 20140711
  Serious: Yes (Other)
  Sender: FDA-Public Use
  Company Number: GB-ABBVIE-13P-167-1177319-00

PATIENT
  Age: 43 Year
  Sex: Male

DRUGS (9)
  1. CLARITHROMYCIN [Suspect]
     Indication: MYCOBACTERIUM FORTUITUM INFECTION
  2. CLARITHROMYCIN [Suspect]
  3. CIPROFLOXACIN [Suspect]
     Indication: MYCOBACTERIUM FORTUITUM INFECTION
  4. CIPROFLOXACIN [Suspect]
  5. TEICOPLANIN [Concomitant]
     Indication: ANTIBIOTIC THERAPY
  6. MEROPEN [Concomitant]
     Indication: ANTIBIOTIC THERAPY
  7. OSELTAMIVIR [Concomitant]
     Indication: ANTIBIOTIC THERAPY
  8. PREDNISOLONE [Concomitant]
     Indication: IMMUNOSUPPRESSION
  9. CYCLOPHOSPHAMIDE [Concomitant]
     Indication: IMMUNOSUPPRESSION

REACTIONS (1)
  - Liver injury [Unknown]
